FAERS Safety Report 18913297 (Version 3)
Quarter: 2024Q4

REPORT INFORMATION
  Report Type: Spontaneous
  Country: ES (occurrence: ES)
  Receive Date: 20210219
  Receipt Date: 20241125
  Transmission Date: 20250115
  Serious: Yes (Hospitalization, Other)
  Sender: AUROBINDO
  Company Number: ES-AUROBINDO-AUR-APL-2014-00480

PATIENT
  Age: 53 Year
  Sex: Male

DRUGS (11)
  1. QUETIAPINE [Suspect]
     Active Substance: QUETIAPINE
     Indication: Schizoaffective disorder bipolar type
     Dosage: 400 MILLIGRAM, DAILY
     Route: 065
  2. QUETIAPINE [Suspect]
     Active Substance: QUETIAPINE
     Dosage: 800 MILLIGRAM, DAILY
     Route: 065
  3. MEROPENEM [Interacting]
     Active Substance: MEROPENEM
     Indication: Respiratory tract infection
     Dosage: 1 GRAM, 3 TIMES A DAY
     Route: 042
  4. VALPROIC ACID [Interacting]
     Active Substance: VALPROIC ACID
     Indication: Schizoaffective disorder bipolar type
     Dosage: 1000 MILLIGRAM, ONCE A DAY
     Route: 065
  5. DIAMICRON [Concomitant]
     Indication: Type 2 diabetes mellitus
     Dosage: UNK
     Route: 048
  6. FLUPHENAZINE DECANOATE [Concomitant]
     Active Substance: FLUPHENAZINE DECANOATE
     Indication: Schizoaffective disorder bipolar type
     Dosage: 200 MILLIGRAM, MONTHLY
     Route: 065
  7. LITHIUM CARBONATE [Concomitant]
     Active Substance: LITHIUM CARBONATE
     Indication: Schizoaffective disorder bipolar type
     Dosage: 1200 MILLIGRAM, DAILY
     Route: 065
  8. METFORMIN [Concomitant]
     Active Substance: METFORMIN HYDROCHLORIDE
     Indication: Type 2 diabetes mellitus
     Dosage: UNK
     Route: 048
  9. RISPERIDONE [Concomitant]
     Active Substance: RISPERIDONE
     Indication: Schizoaffective disorder bipolar type
     Dosage: 6 MILLIGRAM, DAILY
     Route: 065
  10. CLOZAPINE [Concomitant]
     Active Substance: CLOZAPINE
     Indication: Schizoaffective disorder bipolar type
     Dosage: 400 MILLIGRAM, ONCE A DAY
     Route: 065
  11. HALOPERIDOL [Concomitant]
     Active Substance: HALOPERIDOL
     Indication: Product used for unknown indication
     Dosage: UNK
     Route: 065

REACTIONS (8)
  - Schizoaffective disorder bipolar type [Unknown]
  - Seizure [Unknown]
  - Drug level decreased [Unknown]
  - Psychiatric decompensation [Unknown]
  - Epilepsy [Recovering/Resolving]
  - Drug interaction [Unknown]
  - Overdose [Recovered/Resolved]
  - Off label use [Unknown]
